FAERS Safety Report 9502221 (Version 2)
Quarter: 2013Q4

REPORT INFORMATION
  Report Type: Spontaneous
  Country: AU (occurrence: AU)
  Receive Date: 20130906
  Receipt Date: 20131129
  Transmission Date: 20140711
  Serious: Yes (Hospitalization)
  Sender: FDA-Public Use
  Company Number: AU-009507513-1309AUS000123

PATIENT
  Age: 15 Year
  Sex: 0

DRUGS (1)
  1. IMPLANON [Suspect]
     Dosage: DOSE UNSPECIFIED
     Route: 058

REACTIONS (4)
  - Vomiting [Unknown]
  - Pyrexia [Unknown]
  - Chills [Unknown]
  - Nausea [Unknown]
